FAERS Safety Report 20973477 (Version 7)
Quarter: 2022Q4

REPORT INFORMATION
  Report Type: Report from Study
  Country: US (occurrence: US)
  Receive Date: 20220617
  Receipt Date: 20221222
  Transmission Date: 20230112
  Serious: Yes (Other)
  Sender: FDA-Public Use
  Company Number: US-NOVARTISPH-NVSC2022US136540

PATIENT
  Sex: Male

DRUGS (4)
  1. ENTRESTO [Suspect]
     Active Substance: SACUBITRIL\VALSARTAN
     Indication: Product used for unknown indication
     Dosage: 1 DOSAGE FORM, BID
     Route: 048
     Dates: start: 202206
  2. FUROSEMIDE [Suspect]
     Active Substance: FUROSEMIDE
     Indication: Product used for unknown indication
     Dosage: 40 MG, QD
     Route: 048
  3. FUROSEMIDE [Suspect]
     Active Substance: FUROSEMIDE
     Dosage: 40 MG, 4 TIMES A WEEK
     Route: 048
  4. OMEPRAZOLE [Concomitant]
     Active Substance: OMEPRAZOLE
     Indication: Gastrooesophageal reflux disease
     Dosage: UNK
     Route: 065

REACTIONS (10)
  - Cardiac failure [Unknown]
  - Weight fluctuation [Unknown]
  - Weight decreased [Unknown]
  - Oropharyngeal pain [Recovering/Resolving]
  - Sinusitis [Recovering/Resolving]
  - Procedural pain [Recovering/Resolving]
  - Post procedural erythema [Recovering/Resolving]
  - Pain [Recovering/Resolving]
  - Gait disturbance [Recovering/Resolving]
  - Hypotension [Unknown]
